FAERS Safety Report 5575898-4 (Version None)
Quarter: 2007Q4

REPORT INFORMATION
  Report Type: 
  Country: None (occurrence: None)
  Receive Date: 20071221
  Receipt Date: 20071218
  Transmission Date: 20080405
  Serious: Yes (Other)
  Sender: FDA-Public Use
  Company Number: 2007S1013516

PATIENT
  Age: 24 Year
  Sex: Female

DRUGS (5)
  1. AZATHIOPRINE [Suspect]
     Indication: IMMUNOSUPPRESSION
     Dosage: 75 MG;DAILY
     Dates: start: 19900301, end: 20040401
  2. CYCLOSPORINE [Concomitant]
  3. ANTITHYMOCYTE IMMUNOGLOBULIN (ANTITHYMOCYTE IMMUNOGLOBULIN) [Concomitant]
  4. PREDNISONE [Concomitant]
  5. TACROLIMUS [Concomitant]

REACTIONS (11)
  - ASCITES [None]
  - BLOOD ALKALINE PHOSPHATASE INCREASED [None]
  - FACTOR V LEIDEN MUTATION [None]
  - GAMMA-GLUTAMYLTRANSFERASE INCREASED [None]
  - NODULAR REGENERATIVE HYPERPLASIA [None]
  - OESOPHAGEAL VARICES HAEMORRHAGE [None]
  - PLATELET COUNT DECREASED [None]
  - PORTAL HYPERTENSIVE GASTROPATHY [None]
  - PROTEIN S DECREASED [None]
  - SPLENOMEGALY [None]
  - TRANSAMINASES INCREASED [None]
